FAERS Safety Report 21213611 (Version 1)
Quarter: 2022Q3

REPORT INFORMATION
  Report Type: Spontaneous
  Country: US (occurrence: US)
  Receive Date: 20220816
  Receipt Date: 20220816
  Transmission Date: 20221027
  Serious: No
  Sender: FDA-Public Use
  Company Number: US-SA-SAC20220811000947

PATIENT
  Age: 69 Year
  Sex: Female

DRUGS (1)
  1. ENJAYMO [Suspect]
     Active Substance: SUTIMLIMAB-JOME

REACTIONS (2)
  - Fatigue [Unknown]
  - Vision blurred [Unknown]

NARRATIVE: CASE EVENT DATE: 20220809
